FAERS Safety Report 18029317 (Version 1)
Quarter: 2020Q3

REPORT INFORMATION
  Report Type: Spontaneous
  Country: US (occurrence: US)
  Receive Date: 20200715
  Receipt Date: 20200715
  Transmission Date: 20201103
  Serious: No
  Sender: FDA-Public Use
  Company Number: US-ASTRAZENECA-2020SE88237

PATIENT
  Sex: Male
  Weight: 69.9 kg

DRUGS (1)
  1. IMFINZI [Suspect]
     Active Substance: DURVALUMAB
     Indication: PROSTATE CANCER
     Dosage: 50MG.ML EVERY 2 WEEKS
     Route: 042

REACTIONS (3)
  - Asthenia [Unknown]
  - Fatigue [Unknown]
  - Product use in unapproved indication [Unknown]
